FAERS Safety Report 8462761-4 (Version None)
Quarter: 2012Q2

REPORT INFORMATION
  Report Type: 
  Country: None (occurrence: None)
  Receive Date: 20120618
  Receipt Date: 20120618
  Transmission Date: 20120825
  Serious: Yes (Life-Threatening)
  Sender: FDA-Public Use
  Company Number: None

PATIENT
  Age: 64 Year
  Sex: Female
  Weight: 38.1022 kg

DRUGS (1)
  1. HYDROCORTISONE 1% OINTMENT [Suspect]
     Indication: RASH PRURITIC
     Dosage: TOPICAL CREAM
     Route: 061
     Dates: start: 20120612, end: 20120612

REACTIONS (3)
  - ELECTROCARDIOGRAM ABNORMAL [None]
  - CHEST PAIN [None]
  - DOCUMENTED HYPERSENSITIVITY TO ADMINISTERED DRUG [None]
